FAERS Safety Report 12473264 (Version 2)
Quarter: 2016Q2

REPORT INFORMATION
  Report Type: Spontaneous
  Country: CA (occurrence: CA)
  Receive Date: 20160616
  Receipt Date: 20160628
  Transmission Date: 20160815
  Serious: Yes (Other)
  Sender: FDA-Public Use
  Company Number: CA-HQ SPECIALTY-CA-2016INT000369

PATIENT
  Age: 50 Year
  Sex: Female

DRUGS (1)
  1. METHOTREXATE SODIUM. [Suspect]
     Active Substance: METHOTREXATE SODIUM
     Indication: RHEUMATOID ARTHRITIS
     Dosage: 0.7143 MG (5 MG, 1 IN 1 W)
     Route: 048
     Dates: start: 2006

REACTIONS (4)
  - Localised infection [Recovered/Resolved]
  - Cough [Not Recovered/Not Resolved]
  - Hypertension [Recovering/Resolving]
  - Nasopharyngitis [Not Recovered/Not Resolved]

NARRATIVE: CASE EVENT DATE: 201401
